FAERS Safety Report 15129364 (Version 2)
Quarter: 2018Q3

REPORT INFORMATION
  Report Type: Spontaneous
  Country: DE (occurrence: DE)
  Receive Date: 20180711
  Receipt Date: 20180809
  Transmission Date: 20181010
  Serious: Yes (Hospitalization, Other)
  Sender: FDA-Public Use
  Company Number: DE-MERCK KGAA-2051720

PATIENT
  Sex: Female

DRUGS (4)
  1. NOVOTHYROX [Suspect]
     Active Substance: LEVOTHYROXINE SODIUM
  2. NOVOTHYROX [Suspect]
     Active Substance: LEVOTHYROXINE SODIUM
     Indication: AUTOIMMUNE THYROIDITIS
     Dates: start: 2013
  3. VITAMIN D [Suspect]
     Active Substance: CHOLECALCIFEROL
  4. NOVOTHYROX [Suspect]
     Active Substance: LEVOTHYROXINE SODIUM

REACTIONS (10)
  - Thyroxine abnormal [None]
  - Coma [None]
  - Hypothyroidism [None]
  - Disturbance in attention [None]
  - Hyperthyroidism [None]
  - Depression [None]
  - Migraine [None]
  - Anti-thyroid antibody positive [None]
  - Encephalopathy [None]
  - Panic attack [None]

NARRATIVE: CASE EVENT DATE: 201306
